FAERS Safety Report 6843626-8 (Version None)
Quarter: 2010Q2

REPORT INFORMATION
  Report Type: 
  Country: None (occurrence: None)
  Receive Date: 20100629
  Receipt Date: 20100407
  Transmission Date: 20101027
  Serious: No
  Sender: FDA-Public Use
  Company Number: US-WYE-H14581910

PATIENT
  Age: 54 Year
  Sex: Female
  Weight: 81.72 kg

DRUGS (4)
  1. PRISTIQ [Suspect]
     Indication: ANXIETY
     Dosage: 50 MG 1X PER 1 DAY, ORAL
     Route: 048
     Dates: start: 20100301
  2. DIOVAN [Concomitant]
  3. DILTIAZEM [Concomitant]
  4. AMBIEN [Concomitant]

REACTIONS (3)
  - ANXIETY [None]
  - MEDICATION RESIDUE [None]
  - PANIC REACTION [None]
